FAERS Safety Report 6474085-5 (Version None)
Quarter: 2009Q4

REPORT INFORMATION
  Report Type: 
  Country: None (occurrence: None)
  Receive Date: 20091204
  Receipt Date: 20091119
  Transmission Date: 20100525
  Serious: Yes (Hospitalization)
  Sender: FDA-Public Use
  Company Number: FR-BAYER-200940193GPV

PATIENT
  Age: 2 Year
  Sex: Male
  Weight: 14 kg

DRUGS (6)
  1. HELIXATE [Suspect]
     Indication: FACTOR VIII DEFICIENCY
     Route: 042
     Dates: start: 20090827, end: 20090827
  2. HELIXATE [Suspect]
     Route: 042
     Dates: start: 20090907, end: 20090907
  3. HELIXATE [Suspect]
     Route: 042
     Dates: start: 20090908, end: 20090908
  4. HELIXATE [Suspect]
     Route: 042
     Dates: start: 20090916, end: 20090916
  5. HELIXATE [Suspect]
     Route: 042
     Dates: start: 20090908, end: 20090908
  6. HELIXATE [Suspect]
     Route: 042
     Dates: start: 20090916, end: 20090916

REACTIONS (2)
  - ANTI FACTOR VIII ANTIBODY POSITIVE [None]
  - HAEMORRHAGE [None]
